FAERS Safety Report 15550975 (Version 2)
Quarter: 2018Q4

REPORT INFORMATION
  Report Type: Spontaneous
  Country: IN (occurrence: IN)
  Receive Date: 20181025
  Receipt Date: 20181108
  Transmission Date: 20190205
  Serious: Yes (Hospitalization)
  Sender: FDA-Public Use
  Company Number: IN-PFIZER INC-2018438374

PATIENT
  Age: 43 Year
  Sex: Female

DRUGS (2)
  1. PALBACE [Suspect]
     Active Substance: PALBOCICLIB
     Dosage: 125 MG, 1X/DAY
     Route: 048
     Dates: start: 20181013
  2. PALBACE [Suspect]
     Active Substance: PALBOCICLIB
     Indication: BREAST CANCER METASTATIC
     Dosage: 125 MG, 1X/DAY
     Route: 048
     Dates: start: 20180914

REACTIONS (8)
  - Nasopharyngitis [Recovered/Resolved]
  - Platelet count decreased [Unknown]
  - Respiration abnormal [Recovered/Resolved]
  - Urinary tract infection [Recovered/Resolved]
  - Chills [Unknown]
  - Pyrexia [Recovered/Resolved]
  - Haemoglobin decreased [Unknown]
  - Intra-abdominal fluid collection [Recovered/Resolved]

NARRATIVE: CASE EVENT DATE: 201809
